FAERS Safety Report 5953090-9 (Version None)
Quarter: 2008Q4

REPORT INFORMATION
  Report Type: 
  Country: None (occurrence: None)
  Receive Date: 20081114
  Receipt Date: 20080410
  Transmission Date: 20090506
  Serious: No
  Sender: FDA-Public Use
  Company Number: US-BRISTOL-MYERS SQUIBB COMPANY-14146039

PATIENT
  Sex: Male
  Weight: 63 kg

DRUGS (3)
  1. GLUCOPHAGE XR [Suspect]
     Indication: DIABETES MELLITUS
     Dosage: LOT# 7C2065A + EXPIRATION DATE = MAR/2010;  LOT# 7F2504A + EXPIRATION DATE = JUN/2010
     Dates: start: 20010101
  2. ZOCOR [Concomitant]
  3. ACCUPRIL [Concomitant]

REACTIONS (1)
  - BLOOD GLUCOSE INCREASED [None]
